FAERS Safety Report 4296357-5 (Version None)
Quarter: 2004Q1

REPORT INFORMATION
  Report Type: 
  Country: None (occurrence: None)
  Receive Date: 20040217
  Receipt Date: 20040130
  Transmission Date: 20041129
  Serious: Yes (Hospitalization, Other)
  Sender: FDA-Public Use
  Company Number: PHEH2004US01441

PATIENT
  Age: 43 Year
  Sex: Female

DRUGS (6)
  1. CLOZARIL [Suspect]
     Indication: SCHIZOPHRENIA
     Dosage: 600 MG, QD
     Route: 048
  2. ZOLOFT [Concomitant]
  3. BUSPAR [Concomitant]
  4. TRILEPTAL [Concomitant]
  5. SYNTHROID [Concomitant]
  6. HALDOL [Concomitant]

REACTIONS (6)
  - ABNORMAL BEHAVIOUR [None]
  - GLUCOSE TOLERANCE IMPAIRED [None]
  - HALLUCINATION [None]
  - PARANOIA [None]
  - RENAL FAILURE [None]
  - SEDATION [None]
